FAERS Safety Report 6864939-X (Version None)
Quarter: 2010Q3

REPORT INFORMATION
  Report Type: 
  Country: None (occurrence: None)
  Receive Date: 20100720
  Receipt Date: 20100708
  Transmission Date: 20110219
  Serious: Yes (Other)
  Sender: FDA-Public Use
  Company Number: TCI2010A02337

PATIENT
  Age: 56 Year
  Sex: Male

DRUGS (8)
  1. ACTOS [Suspect]
     Indication: TYPE 2 DIABETES MELLITUS
     Dosage: 15 MG (15 MG, 1 IN 1 D), PER ORAL
     Route: 048
     Dates: start: 20090929, end: 20100622
  2. MP-513 (CODE NOT BROKEN) (ORAL ANTIDIABETICS) [Suspect]
     Indication: TYPE 2 DIABETES MELLITUS
     Dosage: MP-513 OR PLACEBO (1 IN 1 D), PER ORAL
     Route: 048
     Dates: start: 20100314, end: 20100605
  3. MP-513 (ORAL ANTIDIABETICS) [Suspect]
     Indication: TYPE 2 DIABETES MELLITUS
     Dosage: 20 MG (20 MG, 1 IN 1 D), PER ORAL
     Route: 048
     Dates: start: 20100606, end: 20100616
  4. CRESTOR [Concomitant]
  5. NORVASC [Concomitant]
  6. LOXONIN (LOXOPROFEN SODIUM) [Concomitant]
  7. MUCOSTA (REBAMIPIDE) [Concomitant]
  8. MS HOT PACK (CAMPHOR, METHYL SALICYLATE, CAPSICUM ANNUUM OLEORESIN) [Concomitant]

REACTIONS (5)
  - BONE CANCER METASTATIC [None]
  - ILIOTIBIAL BAND SYNDROME [None]
  - MYALGIA [None]
  - PAIN IN EXTREMITY [None]
  - PROSTATE CANCER [None]
